FAERS Safety Report 8041978-7 (Version None)
Quarter: 2012Q1

REPORT INFORMATION
  Report Type: 
  Country: None (occurrence: None)
  Receive Date: 20120112
  Receipt Date: 20120109
  Transmission Date: 20120608
  Serious: Yes (Life-Threatening)
  Sender: FDA-Public Use
  Company Number: PHHY2012DE001549

PATIENT
  Sex: Female
  Weight: 110 kg

DRUGS (5)
  1. RAMIPRIL [Suspect]
     Indication: HYPERTENSION
     Dosage: 2 DF, QD
     Route: 048
     Dates: start: 20080101, end: 20111201
  2. RASILEZ [Suspect]
     Indication: HYPERTENSION
     Dosage: 1 DF, QD
     Route: 048
     Dates: start: 20101202, end: 20111209
  3. TORSEMIDE [Concomitant]
     Indication: OEDEMA PERIPHERAL
     Dosage: 1 DF, QD
     Route: 048
     Dates: start: 20080101
  4. RAMIPRIL [Suspect]
     Dosage: UNK
     Dates: start: 20111201, end: 20111201
  5. RASILEZ [Suspect]
     Dosage: UNK
     Dates: start: 20111122

REACTIONS (2)
  - HYPERKALAEMIA [None]
  - METABOLIC ACIDOSIS [None]
